FAERS Safety Report 5064306-8 (Version None)
Quarter: 2006Q3

REPORT INFORMATION
  Report Type: 
  Country: None (occurrence: None)
  Receive Date: 20060725
  Receipt Date: 20060719
  Transmission Date: 20061208
  Serious: Yes (Death, Life-Threatening, Hospitalization)
  Sender: FDA-Public Use
  Company Number: HQWYE921307JUL04

PATIENT
  Age: 69 Year
  Sex: Male
  Weight: 76.73 kg

DRUGS (2)
  1. MYLOTARG [Suspect]
     Indication: ACUTE MYELOID LEUKAEMIA
     Dosage: SEE IMAGE
     Route: 042
     Dates: start: 20040316, end: 20040316
  2. MYLOTARG [Suspect]
     Indication: ACUTE MYELOID LEUKAEMIA
     Dosage: SEE IMAGE
     Route: 042
     Dates: start: 20040330, end: 20040330

REACTIONS (14)
  - ACUTE PRERENAL FAILURE [None]
  - CARDIOVASCULAR DISORDER [None]
  - CHILLS [None]
  - HAEMATOCRIT DECREASED [None]
  - HAEMOGLOBIN DECREASED [None]
  - HEPATIC FAILURE [None]
  - HERPES SIMPLEX [None]
  - MUCOSAL INFLAMMATION [None]
  - NEUTROPENIC SEPSIS [None]
  - ORAL MUCOSAL BLISTERING [None]
  - PLATELET COUNT DECREASED [None]
  - RED BLOOD CELL COUNT DECREASED [None]
  - RENAL MASS [None]
  - WEIGHT INCREASED [None]
